FAERS Safety Report 16863576 (Version 1)
Quarter: 2019Q3

REPORT INFORMATION
  Report Type: Other
  Country: US (occurrence: US)
  Receive Date: 20190927
  Receipt Date: 20190927
  Transmission Date: 20191005
  Serious: No
  Sender: FDA-Public Use
  Company Number: US-FAGRON STERILE SERVICES-2075002

PATIENT
  Age: 64 Year
  Sex: Male
  Weight: 84 kg

DRUGS (1)
  1. SUCCINYLCHOLINE CHLORIDE 20MG/ML INJECTION (API) 5ML [Suspect]
     Active Substance: SUCCINYLCHOLINE CHLORIDE
     Dates: start: 20190513, end: 20190513

REACTIONS (1)
  - Drug ineffective [Recovered/Resolved]

NARRATIVE: CASE EVENT DATE: 20190513
